FAERS Safety Report 8970677 (Version 1)
Quarter: 2012Q4

REPORT INFORMATION
  Report Type: 
  Country: US (occurrence: US)
  Receive Date: 20121218
  Receipt Date: 20121218
  Transmission Date: 20130627
  Serious: No
  Sender: FDA-Public Use
  Company Number: US-BRISTOL-MYERS SQUIBB COMPANY-14898712

PATIENT
  Age: 71 Year
  Sex: Female

DRUGS (2)
  1. ABILIFY [Suspect]
     Route: 048
  2. CYMBALTA [Concomitant]

REACTIONS (2)
  - Restless legs syndrome [Not Recovered/Not Resolved]
  - Tardive dyskinesia [Not Recovered/Not Resolved]
